FAERS Safety Report 11420981 (Version 1)
Quarter: 2015Q3

REPORT INFORMATION
  Report Type: Report from Study
  Country: CA (occurrence: CA)
  Receive Date: 20150826
  Receipt Date: 20150826
  Transmission Date: 20151125
  Serious: Yes (Other)
  Sender: FDA-Public Use
  Company Number: CA-MYLANLABS-2015M1028620

PATIENT

DRUGS (6)
  1. DALTEPARIN SODIUM [Concomitant]
     Active Substance: DALTEPARIN SODIUM
     Indication: PRODUCT USED FOR UNKNOWN INDICATION
     Dosage: ADMINISTERED AT THIS DOSAGE ON DAYS 17-21
     Route: 058
  2. WARFARIN [Suspect]
     Active Substance: WARFARIN
     Dosage: 1MG ADMINISTERED ON DAY 12
     Route: 065
  3. HEPARIN [Concomitant]
     Active Substance: HEPARIN SODIUM
     Indication: PRODUCT USED FOR UNKNOWN INDICATION
     Route: 065
  4. WARFARIN [Suspect]
     Active Substance: WARFARIN
     Indication: DEEP VEIN THROMBOSIS
     Dosage: 5MG ADMINISTERED ON DAYS 9, 10 AND 11, AND 19 AND 20
     Route: 065
  5. DANAPAROID SODIUM [Concomitant]
     Active Substance: DANAPAROID SODIUM
     Indication: PRODUCT USED FOR UNKNOWN INDICATION
     Dosage: ADMINISTERED ON DAYS 13-17
     Route: 065
  6. DALTEPARIN SODIUM [Concomitant]
     Active Substance: DALTEPARIN SODIUM
     Dosage: ADMINISTERED AT THIS DOSAGE FROM DAY 21
     Route: 058

REACTIONS (3)
  - Deep vein thrombosis [Not Recovered/Not Resolved]
  - Gangrene [Recovered/Resolved with Sequelae]
  - Condition aggravated [Unknown]
